FAERS Safety Report 7668968-8 (Version None)
Quarter: 2011Q3

REPORT INFORMATION
  Report Type: 
  Country: None (occurrence: None)
  Receive Date: 20110808
  Receipt Date: 20110727
  Transmission Date: 20111222
  Serious: Yes (Other)
  Sender: FDA-Public Use
  Company Number: GB-GLAXOSMITHKLINE-B0726922A

PATIENT
  Sex: Male

DRUGS (2)
  1. THEOPHYLLINE [Concomitant]
  2. VENTOLIN HFA [Suspect]
     Indication: ASTHMA
     Dosage: 100MCG AS REQUIRED
     Route: 055

REACTIONS (3)
  - FATIGUE [None]
  - VERTIGO [None]
  - ASTHMA [None]
